FAERS Safety Report 7568318-1 (Version None)
Quarter: 2011Q2

REPORT INFORMATION
  Report Type: 
  Country: None (occurrence: None)
  Receive Date: 20110617
  Receipt Date: 20110602
  Transmission Date: 20111010
  Serious: Yes (Hospitalization, Other)
  Sender: FDA-Public Use
  Company Number: 2009S1006019

PATIENT
  Age: 58 Year
  Sex: Male
  Weight: 80.7403 kg

DRUGS (5)
  1. SODIUM PHOSPHATE DIBASIC/SODIUM PHOSPHATE MONOBASIC (ANHYDRATE) [Suspect]
     Indication: COLONOSCOPY
     Dosage: ; PO
     Route: 048
     Dates: start: 20080603
  2. ZESTRIL [Concomitant]
  3. ZOCOR [Concomitant]
  4. DIOVAN [Concomitant]
  5. PLAVIX [Concomitant]

REACTIONS (24)
  - VENTRICULAR TACHYCARDIA [None]
  - URINARY TRACT DISORDER [None]
  - ACUTE PHOSPHATE NEPHROPATHY [None]
  - ACUTE PULMONARY OEDEMA [None]
  - PULMONARY TOXICITY [None]
  - HAEMODIALYSIS [None]
  - RENAL OSTEODYSTROPHY [None]
  - COLITIS [None]
  - RESPIRATORY FAILURE [None]
  - ABDOMINAL PAIN [None]
  - DECREASED APPETITE [None]
  - RENAL FAILURE ACUTE [None]
  - FLUID OVERLOAD [None]
  - ARRHYTHMIA [None]
  - NAUSEA [None]
  - VOMITING [None]
  - RENAL FAILURE CHRONIC [None]
  - FATIGUE [None]
  - HAEMOPTYSIS [None]
  - PYREXIA [None]
  - CHILLS [None]
  - HYPOXIA [None]
  - CARDIAC FAILURE CONGESTIVE [None]
  - ELECTROLYTE IMBALANCE [None]
